FAERS Safety Report 16196628 (Version 1)
Quarter: 2019Q2

REPORT INFORMATION
  Report Type: Report from Study
  Country: US (occurrence: US)
  Receive Date: 20190415
  Receipt Date: 20190415
  Transmission Date: 20190711
  Serious: Yes (Death)
  Sender: FDA-Public Use
  Company Number: US-TAIHO ONCOLOGY  INC-EU-2019-01144

PATIENT
  Sex: Male
  Weight: 108.96 kg

DRUGS (23)
  1. MORPHINE [Concomitant]
     Active Substance: MORPHINE
     Dosage: NI
  2. ACETAMINOPHEN AND CODEINE [Concomitant]
     Active Substance: ACETAMINOPHEN\CODEINE PHOSPHATE
     Dosage: NI
  3. LORATADINE. [Concomitant]
     Active Substance: LORATADINE
     Dosage: NI
  4. SPIRONOLACTONE. [Concomitant]
     Active Substance: SPIRONOLACTONE
     Dosage: NI
  5. LISINOPRIL. [Concomitant]
     Active Substance: LISINOPRIL
     Dosage: NI
  6. CARVEDILOL. [Concomitant]
     Active Substance: CARVEDILOL
     Dosage: NI
  7. HUMALOG [Concomitant]
     Active Substance: INSULIN LISPRO
     Dosage: NI
  8. ONDANSETRON [Concomitant]
     Active Substance: ONDANSETRON
     Dosage: NI
  9. IPRATROPIUM-ALBUTEROL [Concomitant]
     Active Substance: ALBUTEROL\IPRATROPIUM
     Dosage: NI
  10. CREON [Concomitant]
     Active Substance: PANCRELIPASE AMYLASE\PANCRELIPASE LIPASE\PANCRELIPASE PROTEASE
     Dosage: NI
  11. PANTOPRAZOLE [Concomitant]
     Active Substance: PANTOPRAZOLE
     Dosage: NI
  12. HYDROCODONE/ACETAMINOPHEN [Concomitant]
     Active Substance: ACETAMINOPHEN\HYDROCODONE
     Dosage: NI
  13. PROMETHAZINE [Concomitant]
     Active Substance: PROMETHAZINE\PROMETHAZINE HYDROCHLORIDE
     Dosage: NI
  14. BACLOFEN. [Concomitant]
     Active Substance: BACLOFEN
     Dosage: NI
  15. NAPROXEN. [Concomitant]
     Active Substance: NAPROXEN
     Dosage: NI
  16. FUROSEMIDE. [Concomitant]
     Active Substance: FUROSEMIDE
     Dosage: NI
  17. LONSURF [Suspect]
     Active Substance: TIPIRACIL HYDROCHLORIDE\TRIFLURIDINE
     Indication: RECTAL CANCER
     Dosage: CURRENT CYCLE UNKNOWN
     Route: 048
  18. LANTUS [Concomitant]
     Active Substance: INSULIN GLARGINE
     Dosage: NI
  19. LIDOCAINE. [Concomitant]
     Active Substance: LIDOCAINE
     Dosage: NI
  20. CEPHALEXIN. [Concomitant]
     Active Substance: CEPHALEXIN
     Dosage: NI
  21. DEXAMETHASONE. [Concomitant]
     Active Substance: DEXAMETHASONE
     Dosage: NI
  22. POTASSIUM CHLORIDE. [Concomitant]
     Active Substance: POTASSIUM CHLORIDE
     Dosage: NI
  23. NOVOLOG [Concomitant]
     Active Substance: INSULIN ASPART
     Dosage: NI

REACTIONS (1)
  - Death [Fatal]
